FAERS Safety Report 8854196 (Version 1)
Quarter: 2012Q4

REPORT INFORMATION
  Report Type: Spontaneous
  Country: US (occurrence: None)
  Receive Date: 20121018
  Receipt Date: 20121018
  Transmission Date: 20130627
  Serious: Yes (Hospitalization)
  Sender: FDA-Public Use
  Company Number: SPI201200258

PATIENT
  Sex: Male

DRUGS (1)
  1. AMITIZA [Suspect]
     Dates: start: 2011

REACTIONS (1)
  - Colitis ischaemic [None]
